FAERS Safety Report 6566907-4 (Version None)
Quarter: 2010Q1

REPORT INFORMATION
  Report Type: 
  Country: None (occurrence: None)
  Receive Date: 20100202
  Receipt Date: 20100127
  Transmission Date: 20100710
  Serious: Yes (Hospitalization, Other)
  Sender: FDA-Public Use
  Company Number: US-ROXANE LABORATORIES, INC.-2010-RO-00103RO

PATIENT
  Age: 32 Year
  Sex: Female

DRUGS (14)
  1. DEXAMETHASONE [Suspect]
     Indication: ANTIEMETIC SUPPORTIVE CARE
     Dosage: 8 MG
     Route: 048
  2. DEXAMETHASONE [Suspect]
     Dosage: 8 MG
  3. DEXAMETHASONE [Suspect]
     Dosage: 8 MG
  4. LORAZEPAM [Suspect]
     Indication: ANTIEMETIC SUPPORTIVE CARE
  5. ONDANSETRON [Suspect]
     Indication: NAUSEA
  6. PEMETREXED [Suspect]
     Indication: PERITONEAL MESOTHELIOMA MALIGNANT ADVANCED
     Route: 051
  7. CISPLATIN [Suspect]
     Indication: PERITONEAL MESOTHELIOMA MALIGNANT ADVANCED
     Route: 051
  8. APREPITANT [Suspect]
     Indication: ANTIEMETIC SUPPORTIVE CARE
  9. PALONOSETRON [Suspect]
     Indication: ANTIEMETIC SUPPORTIVE CARE
  10. PROCHLORPERAZINE [Suspect]
     Indication: ANTIEMETIC SUPPORTIVE CARE
  11. DIPHENHYDRAMINE [Suspect]
     Indication: NAUSEA
  12. DRONABINOL [Suspect]
     Indication: NAUSEA
  13. DIAZEPAM [Concomitant]
     Indication: CONVULSION
     Route: 042
  14. FOSPHENYTOIN [Concomitant]
     Indication: CONVULSION
     Route: 042

REACTIONS (3)
  - CONVULSION [None]
  - NAUSEA [None]
  - REVERSIBLE POSTERIOR LEUKOENCEPHALOPATHY SYNDROME [None]
